FAERS Safety Report 15955997 (Version 2)
Quarter: 2019Q2

REPORT INFORMATION
  Report Type: Spontaneous
  Country: US (occurrence: US)
  Receive Date: 20190213
  Receipt Date: 20190423
  Transmission Date: 20190711
  Serious: No
  Sender: FDA-Public Use
  Company Number: US-MYLANLABS-2019M1008225

PATIENT
  Age: 72 Year
  Sex: Female
  Weight: 61.22 kg

DRUGS (1)
  1. ESTRADIOL VAGINAL CREAM USP [Suspect]
     Active Substance: ESTRADIOL
     Indication: PRODUCT USED FOR UNKNOWN INDICATION
     Route: 067

REACTIONS (2)
  - Product dispensing error [Recovered/Resolved]
  - Overdose [Recovered/Resolved]
